FAERS Safety Report 5799671-7 (Version None)
Quarter: 2008Q2

REPORT INFORMATION
  Report Type: 
  Country: None (occurrence: None)
  Receive Date: 20080601
  Receipt Date: 20080130
  Transmission Date: 20081010
  Serious: No
  Sender: FDA-Public Use
  Company Number: US200801006953

PATIENT
  Age: 48 Year
  Sex: Female
  Weight: 54.4 kg

DRUGS (6)
  1. BYETTA [Suspect]
     Indication: INSULIN RESISTANT DIABETES
     Dosage: 5 UG, 2/D, SUBCUTANEOUS; 10 UG, 2./D
     Route: 058
     Dates: start: 20071101, end: 20071201
  2. BYETTA [Suspect]
     Indication: INSULIN RESISTANT DIABETES
     Dosage: 5 UG, 2/D, SUBCUTANEOUS; 10 UG, 2./D
     Route: 058
     Dates: start: 20071201
  3. EXENATIDE 5MCG PEN, DISPOSABLE DEVICE (EXENATIDE PEN (5MCG)) PEN,DISPO [Concomitant]
  4. EXENATIDE 5MCG PEN, DISPOSABLE DEVICE (EXENATIDE PEN (5MCG)) PEN,DISPO [Concomitant]
  5. EXENATIDE 10MCG PEN, DISPOSABLE DEVICE (EXENATIDE PEN 910MCG)) PEN,DIS [Concomitant]
  6. METFORMIN HCL [Concomitant]

REACTIONS (7)
  - DECREASED APPETITE [None]
  - FEELING ABNORMAL [None]
  - FEELING HOT [None]
  - HEADACHE [None]
  - NAUSEA [None]
  - PYREXIA [None]
  - WEIGHT DECREASED [None]
